FAERS Safety Report 8821757 (Version 3)
Quarter: 2012Q4

REPORT INFORMATION
  Report Type: Report from Study
  Country: JP (occurrence: JP)
  Receive Date: 20121002
  Receipt Date: 20121219
  Transmission Date: 20130627
  Serious: Yes (Other)
  Sender: FDA-Public Use
  Company Number: JP-GILEAD-2012-0060583

PATIENT
  Sex: Male

DRUGS (15)
  1. AMBRISENTAN [Suspect]
     Indication: PULMONARY HYPERTENSION
     Dosage: 10 mg, QD
     Route: 048
     Dates: start: 201207, end: 20120823
  2. AMBRISENTAN [Suspect]
     Dosage: 2.5 mg, QD
     Route: 048
     Dates: start: 201204, end: 201205
  3. AMBRISENTAN [Suspect]
     Dosage: 5 mg, QD
     Route: 048
     Dates: start: 201205, end: 201206
  4. AMBRISENTAN [Suspect]
     Dosage: 7.5 mg, QD
     Route: 048
     Dates: start: 201206, end: 201207
  5. AMBRISENTAN [Suspect]
     Dosage: 5 mg, QD
     Route: 048
     Dates: start: 20120824
  6. ADCIRCA [Concomitant]
     Dosage: 40MG Per day
     Route: 048
  7. ADCIRCA [Concomitant]
     Dosage: 20MG Twice per day
     Route: 048
     Dates: start: 20120720
  8. FUROSEMIDE [Concomitant]
     Dosage: 60MG Twice per day
     Route: 048
     Dates: start: 20120720
  9. ZYLORIC [Concomitant]
     Dosage: 50MG Per day
     Route: 048
     Dates: start: 20120720
  10. WARFARIN [Concomitant]
     Dosage: 2.75MG Per day
     Route: 048
     Dates: start: 20120720
  11. TAKEPRON [Concomitant]
     Dosage: 30MG Per day
     Route: 048
     Dates: start: 20120720
  12. METHYCOBAL [Concomitant]
     Dosage: 500MCG Three times per day
     Route: 048
     Dates: start: 20120720
  13. JUVELA N [Concomitant]
     Dosage: 100MG Three times per day
     Route: 048
     Dates: start: 20120720
  14. LAC-B [Concomitant]
     Dosage: 1G Three times per day
     Route: 048
     Dates: start: 20120720
  15. VERAPAMIL HYDROCHLORIDE [Concomitant]
     Dosage: 40MG Three times per day
     Route: 048
     Dates: start: 20120720

REACTIONS (4)
  - Gamma-glutamyltransferase increased [Recovering/Resolving]
  - Drug-induced liver injury [Unknown]
  - Blood alkaline phosphatase increased [Recovering/Resolving]
  - Cholelithiasis [Unknown]
